FAERS Safety Report 5958587-3 (Version None)
Quarter: 2008Q4

REPORT INFORMATION
  Report Type: 
  Country: None (occurrence: None)
  Receive Date: 20081110
  Receipt Date: 20081012
  Transmission Date: 20090506
  Serious: Yes (Death)
  Sender: FDA-Public Use
  Company Number: CHPA2008US18028

PATIENT
  Sex: Male

DRUGS (7)
  1. DIPHENHYDRAMINE HYDROCHLORIDE [Suspect]
  2. CARISOPRODOL [Suspect]
  3. OXYCODONE HCL [Suspect]
  4. HYDROCODONE (HYDROCODONE) [Suspect]
  5. WARFARIN SODIUM [Suspect]
  6. PREGABALIN (PREGABALIN) [Suspect]
  7. IBUPROFEN [Suspect]

REACTIONS (2)
  - CARDIAC ARREST [None]
  - RESPIRATORY ARREST [None]
